FAERS Safety Report 15758960 (Version 1)
Quarter: 2018Q4

REPORT INFORMATION
  Report Type: Report from Study
  Country: US (occurrence: US)
  Receive Date: 20181225
  Receipt Date: 20181225
  Transmission Date: 20190205
  Serious: Yes (Other)
  Sender: FDA-Public Use
  Company Number: PHEH2018US054434

PATIENT
  Sex: Female

DRUGS (1)
  1. ZARXIO [Suspect]
     Active Substance: FILGRASTIM-SNDZ
     Indication: BONE MARROW FAILURE
     Dosage: UNK
     Route: 065
     Dates: start: 20180719

REACTIONS (2)
  - Visual impairment [Unknown]
  - Neuropathy peripheral [Unknown]
